FAERS Safety Report 6302055-6 (Version None)
Quarter: 2009Q3

REPORT INFORMATION
  Report Type: 
  Country: None (occurrence: None)
  Receive Date: 20090807
  Receipt Date: 20090730
  Transmission Date: 20100115
  Serious: Yes (Other)
  Sender: FDA-Public Use
  Company Number: JP-ABBOTT-09P-087-0575708-00

PATIENT
  Sex: Female
  Weight: 48 kg

DRUGS (12)
  1. HUMIRA [Suspect]
     Indication: RHEUMATOID ARTHRITIS
     Route: 058
     Dates: start: 20090507, end: 20090507
  2. ISCOTIN [Concomitant]
     Indication: ANTIBIOTIC PROPHYLAXIS
     Dates: start: 20090407, end: 20090520
  3. HYPEN [Concomitant]
     Indication: RHEUMATOID ARTHRITIS
     Route: 048
     Dates: start: 20090407
  4. STRONG ADEROXIN POWDER [Concomitant]
     Indication: PROPHYLAXIS
     Route: 048
     Dates: start: 20090415, end: 20090520
  5. STRONG ADEROXIN POWDER [Concomitant]
     Indication: ADVERSE REACTION
  6. METOLATE [Concomitant]
     Indication: RHEUMATOID ARTHRITIS
     Dates: start: 20090508, end: 20090516
  7. FOLIAMIN [Concomitant]
     Indication: VITAMIN SUPPLEMENTATION
     Route: 048
     Dates: start: 20090510, end: 20090517
  8. MUCOSTA [Concomitant]
     Indication: RHEUMATOID ARTHRITIS
     Dates: start: 20080512, end: 20080605
  9. RIMATIL [Concomitant]
     Indication: RHEUMATOID ARTHRITIS
     Dates: start: 20080512, end: 20080605
  10. RIMATIL [Concomitant]
     Indication: PROPHYLAXIS AGAINST GASTROINTESTINAL ULCER
  11. LOXONIN [Concomitant]
     Indication: RHEUMATOID ARTHRITIS
     Dates: start: 20080526, end: 20080605
  12. AZULFIDINE EN-TABS [Concomitant]
     Indication: RHEUMATOID ARTHRITIS
     Dates: start: 20080920, end: 20080922

REACTIONS (1)
  - TOXIC SKIN ERUPTION [None]
